FAERS Safety Report 6016941-8 (Version None)
Quarter: 2008Q4

REPORT INFORMATION
  Report Type: 
  Country: None (occurrence: None)
  Receive Date: 20081219
  Receipt Date: 20060818
  Transmission Date: 20090506
  Serious: No
  Sender: FDA-Public Use
  Company Number: TEST00206002790

PATIENT
  Sex: Female

DRUGS (2)
  1. ANDROGEL [Suspect]
     Indication: ACCIDENTAL EXPOSURE
     Dosage: DAILY TRANSCUTANEOUS
  2. ANDROGEL [Suspect]
     Indication: DRUG USE FOR UNKNOWN INDICATION
     Dosage: DAILY TRANSCUTANEOUS

REACTIONS (1)
  - BLOOD TESTOSTERONE INCREASED [None]
